FAERS Safety Report 16350959 (Version 2)
Quarter: 2019Q2

REPORT INFORMATION
  Report Type: Spontaneous
  Country: JP (occurrence: JP)
  Receive Date: 20190524
  Receipt Date: 20190621
  Transmission Date: 20190711
  Serious: Yes (Death)
  Sender: FDA-Public Use
  Company Number: JP-TEVA-2019-JP-1054596

PATIENT
  Age: 78 Year
  Sex: Male

DRUGS (7)
  1. AZILECT [Suspect]
     Active Substance: RASAGILINE MESYLATE
     Indication: PARKINSON^S DISEASE
     Dosage: 1 MILLIGRAM DAILY;
     Route: 065
  2. BI SIFROL [Concomitant]
     Active Substance: PRAMIPEXOLE
  3. MENESIT [Concomitant]
     Active Substance: CARBIDOPA\LEVODOPA
  4. TRERIEF [Concomitant]
     Active Substance: ZONISAMIDE
  5. COMTAN [Concomitant]
     Active Substance: ENTACAPONE
  6. DOPS [Concomitant]
     Active Substance: DROXIDOPA
  7. CABASER [Concomitant]
     Active Substance: CABERGOLINE

REACTIONS (2)
  - Asphyxia [Fatal]
  - Aspiration [Fatal]
